FAERS Safety Report 7690504-0 (Version None)
Quarter: 2011Q3

REPORT INFORMATION
  Report Type: 
  Country: None (occurrence: None)
  Receive Date: 20110818
  Receipt Date: 20110815
  Transmission Date: 20111222
  Serious: Yes (Other)
  Sender: FDA-Public Use
  Company Number: BR-PFIZER INC-2011187180

PATIENT
  Age: 66 Year
  Sex: Male

DRUGS (3)
  1. ATACAND [Concomitant]
     Dosage: UNK
     Dates: start: 20040101
  2. CARDIAZEM (DILTIAZEM HYDROCHLORIDE) [Concomitant]
     Dosage: UNK
     Dates: start: 20040101
  3. CELEBREX [Suspect]
     Dosage: UNK
     Route: 048
     Dates: start: 20100901

REACTIONS (1)
  - ARTERIAL OCCLUSIVE DISEASE [None]
